FAERS Safety Report 6674210-7 (Version None)
Quarter: 2010Q2

REPORT INFORMATION
  Report Type: 
  Country: None (occurrence: None)
  Receive Date: 20100409
  Receipt Date: 20100331
  Transmission Date: 20101027
  Serious: Yes (Hospitalization)
  Sender: FDA-Public Use
  Company Number: US-NOVOPROD-306464

PATIENT
  Age: 60 Year
  Sex: Female
  Weight: 102 kg

DRUGS (8)
  1. NOVOLOG [Suspect]
     Indication: DIABETES MELLITUS
     Dosage: 50 IU, QD
     Route: 058
     Dates: start: 20091207
  2. INSULIN HUMAN [Suspect]
     Indication: DIABETES MELLITUS
  3. DECADRON [Suspect]
     Indication: STEROID THERAPY
     Dosage: 8 MG, Q 8H
     Dates: start: 20091207
  4. VERPAMIL [Concomitant]
     Dosage: 180 MG, QD
     Route: 048
     Dates: start: 20091207
  5. VITAMIN A [Concomitant]
     Dosage: 1000 MG, QD
     Route: 048
     Dates: start: 20091207
  6. MULTIVITAMIN                       /00097801/ [Concomitant]
     Dosage: UNK
     Route: 048
     Dates: start: 20091207
  7. HYDROCODONE BITARTRATE [Concomitant]
     Indication: PAIN
     Dosage: 5/500 MG Q4HR PRN
     Route: 048
     Dates: start: 20091207
  8. TYLENOL (CAPLET) [Concomitant]
     Indication: PAIN
     Dosage: 1 OR 2 Q 6-8 HRS PRN

REACTIONS (4)
  - DIABETES MELLITUS INADEQUATE CONTROL [None]
  - HYPERGLYCAEMIA [None]
  - PNEUMONIA [None]
  - VAGINITIS BACTERIAL [None]
